FAERS Safety Report 12211282 (Version 5)
Quarter: 2016Q3

REPORT INFORMATION
  Report Type: Spontaneous
  Country: US (occurrence: US)
  Receive Date: 20160325
  Receipt Date: 20160902
  Transmission Date: 20161109
  Serious: Yes (Hospitalization)
  Sender: FDA-Public Use
  Company Number: US-VERTEX PHARMACEUTICALS-2016-001821

PATIENT
  Sex: Male

DRUGS (15)
  1. AQUADEKS [Concomitant]
     Active Substance: MINERALS\VITAMINS
     Dosage: 2 DF, QD
     Route: 048
  2. MULTIVITAMIN [Concomitant]
     Active Substance: VITAMINS
     Dosage: 2 DF, QD
     Route: 048
  3. BETHKIS [Concomitant]
     Active Substance: TOBRAMYCIN
     Dosage: 4 ML, BID, CYCLE ON/OFF EVERY 28 DAYS
     Route: 055
  4. ORKAMBI [Suspect]
     Active Substance: IVACAFTOR\LUMACAFTOR
     Dosage: 400-250 MG, BID
     Route: 048
     Dates: start: 20160304
  5. MEPHYTON [Concomitant]
     Active Substance: PHYTONADIONE
     Dosage: 2 DF, QD
     Route: 048
  6. SODIUM CHLORIDE. [Concomitant]
     Active Substance: SODIUM CHLORIDE
     Dosage: 4 ML, BID
     Route: 055
  7. AZITHROMYCIN ANHYDROUS. [Concomitant]
     Active Substance: AZITHROMYCIN ANHYDROUS
     Dosage: 1 DF, MONDAY, WEDNESDAY AND FRIDAY
     Route: 048
  8. ALBUTEROL SULFATE. [Concomitant]
     Active Substance: ALBUTEROL SULFATE
     Indication: WHEEZING
  9. FLOVENT HFA [Concomitant]
     Active Substance: FLUTICASONE PROPIONATE
     Dosage: 2 PUFFS WITH SPACER, BID
     Route: 055
  10. ORKAMBI [Suspect]
     Active Substance: IVACAFTOR\LUMACAFTOR
     Indication: CYSTIC FIBROSIS
     Dosage: 400-250 MG, BID
     Route: 048
     Dates: start: 20151019, end: 20160304
  11. PROVENTIL HFA [Concomitant]
     Active Substance: ALBUTEROL SULFATE
     Indication: COUGH
     Dosage: 2-4 PUFFS WITH SPACER BEFORE HYPERSAL AND EVERY 3 HOURS, PRN
     Route: 055
  12. PROVENTIL HFA [Concomitant]
     Active Substance: ALBUTEROL SULFATE
     Indication: WHEEZING
  13. ZENPEP [Concomitant]
     Active Substance: PANCRELIPASE AMYLASE\PANCRELIPASE LIPASE\PANCRELIPASE PROTEASE
     Dosage: TAKE 4 CAPSULES WITH 3 MEALS PER DAY AND 1 WITH 3 SNACKS PER DAY
     Route: 048
  14. ALBUTEROL SULFATE. [Concomitant]
     Active Substance: ALBUTEROL SULFATE
     Indication: COUGH
     Dosage: ONE VIAL EVERY THREE HOURS, PRN
  15. PULMOZYME [Concomitant]
     Active Substance: DORNASE ALFA
     Dosage: 2.5 ML, QD
     Route: 055

REACTIONS (3)
  - Dizziness [Recovered/Resolved]
  - Infective pulmonary exacerbation of cystic fibrosis [Recovered/Resolved]
  - Drug dose omission [Unknown]
